FAERS Safety Report 4372425-4 (Version None)
Quarter: 2004Q2

REPORT INFORMATION
  Report Type: 
  Country: None (occurrence: None)
  Receive Date: 20040526
  Receipt Date: 20040518
  Transmission Date: 20050107
  Serious: Yes (Life-Threatening, Hospitalization)
  Sender: FDA-Public Use
  Company Number: JP-JNJFOC-20040303794

PATIENT
  Age: 73 Year
  Sex: Male
  Weight: 41 kg

DRUGS (7)
  1. RISPERDAL [Suspect]
     Indication: SCHIZOPHRENIA
     Dosage: 2 MG, 1 IN 1 DAY, ORAL
     Route: 048
     Dates: start: 20031125, end: 20031223
  2. VALPROATE SODIUM [Suspect]
     Indication: CONVULSION
     Dosage: 400 MG, 1 IN 1 DAY, ORAL
     Route: 048
     Dates: start: 20030902, end: 20031223
  3. TIAPRIDE HYDROCHLORIED (TIAPRIDE HYDROCHLORIDE) UNSPECIFIED [Suspect]
     Indication: DELIRIUM
     Dosage: 100 MG, 1 IN 1 DAY, ORAL
     Route: 048
     Dates: start: 20030514, end: 20031223
  4. FLUNITRAZEPAM (FUNITRAZEPAM) UNSPECIFIED [Concomitant]
  5. ESTAZOLAM (ESTAZOLAM) UNSPECIFIED [Concomitant]
  6. CHLORPROMAZINE [Concomitant]
  7. BIPERIDEN HYDROCHLORIDE (BIPERIDEN HYDROCHLORIDE3) [Concomitant]

REACTIONS (14)
  - ALANINE AMINOTRANSFERASE INCREASED [None]
  - ASPARTATE AMINOTRANSFERASE INCREASED [None]
  - BLOOD CREATINE PHOSPHOKINASE INCREASED [None]
  - C-REACTIVE PROTEIN DECREASED [None]
  - CONVULSION [None]
  - DEMENTIA ALZHEIMER'S TYPE [None]
  - DRUG EFFECT DECREASED [None]
  - HEPATIC FUNCTION ABNORMAL [None]
  - HEPATOCELLULAR DAMAGE [None]
  - HYPERKINESIA [None]
  - LEUKOPENIA [None]
  - NEUTROPENIA [None]
  - PNEUMONIA [None]
  - URINARY INCONTINENCE [None]
